FAERS Safety Report 6057075-6 (Version None)
Quarter: 2009Q1

REPORT INFORMATION
  Report Type: 
  Country: None (occurrence: None)
  Receive Date: 20090129
  Receipt Date: 20090122
  Transmission Date: 20090719
  Serious: Yes (Other)
  Sender: FDA-Public Use
  Company Number: JP-ASTRAZENECA-2008AP09780

PATIENT
  Age: 12619 Day
  Sex: Female
  Weight: 60 kg

DRUGS (15)
  1. NAROPIN [Suspect]
     Indication: EPIDURAL ANAESTHESIA
     Dosage: 0.2% 95 ML WAS ADMINISTERED AT 3 ML/H, 5ML/H, AND 2ML/H.
     Route: 008
     Dates: start: 20081212, end: 20081212
  2. NAROPIN [Suspect]
     Dosage: 0.2% 95 ML WAS ADMINISTERED AT 3 ML/H, 5ML/H, AND 2ML/H.
     Route: 008
     Dates: start: 20081212, end: 20081213
  3. NAROPIN [Suspect]
     Dosage: 0.2% 95 ML WAS ADMINISTERED AT 3 ML/H, 5ML/H, AND 2ML/H.
     Route: 008
     Dates: start: 20081213, end: 20081213
  4. MARCAIN SPINAL INJECTION 0.5% HYPERBARIC [Concomitant]
     Indication: SPINAL ANAESTHESIA
     Dosage: 4 ML ADMINISTERED
     Route: 037
     Dates: start: 20081212, end: 20081212
  5. FENTANYL CITRATE [Concomitant]
     Indication: EPIDURAL ANAESTHESIA
     Dosage: BOLUS ADMINISTRATION (50 MCG) AND THEN 250 MCG AT 3ML/H, 5ML/H, AND 2ML/H.
     Route: 008
     Dates: start: 20081212, end: 20081213
  6. PANTOL [Concomitant]
     Indication: GASTROINTESTINAL HYPOMOTILITY
     Route: 042
     Dates: start: 20081212, end: 20081215
  7. PARTAN M [Concomitant]
     Indication: LABOUR STIMULATION
     Route: 042
     Dates: start: 20081212, end: 20081215
  8. PANSPORIN [Concomitant]
     Indication: INFECTION PROPHYLAXIS
     Dosage: DOSE UNKNOWN
     Route: 042
     Dates: start: 20081213, end: 20081215
  9. BROCIN [Concomitant]
     Indication: BRONCHITIS
     Route: 048
     Dates: start: 20081211, end: 20081217
  10. NEOPHYLLIN INJECTION [Concomitant]
     Indication: BRONCHITIS
     Route: 042
     Dates: start: 20081212, end: 20081213
  11. BISOLVON [Concomitant]
     Indication: BRONCHITIS
     Route: 042
     Dates: start: 20081213, end: 20081213
  12. SAXIZON [Concomitant]
     Indication: BRONCHITIS
     Route: 042
     Dates: start: 20081213, end: 20081213
  13. THEO-DUR [Concomitant]
     Indication: BRONCHITIS
     Route: 048
     Dates: start: 20081213, end: 20081217
  14. MUCODYNE [Concomitant]
     Indication: BRONCHITIS
     Route: 048
     Dates: start: 20081213, end: 20081217
  15. XYLOCAINE [Concomitant]
     Dosage: TEST DOSE
     Route: 008
     Dates: start: 20081212, end: 20081212

REACTIONS (7)
  - ABDOMINAL PAIN [None]
  - ANAESTHETIC COMPLICATION [None]
  - CAESAREAN SECTION [None]
  - DRUG EXPOSURE DURING PREGNANCY [None]
  - HYPOAESTHESIA [None]
  - HYPOAESTHESIA ORAL [None]
  - MUSCULAR WEAKNESS [None]
